FAERS Safety Report 5578852-1 (Version None)
Quarter: 2007Q4

REPORT INFORMATION
  Report Type: 
  Country: None (occurrence: None)
  Receive Date: 20071228
  Receipt Date: 20071219
  Transmission Date: 20080405
  Serious: Yes (Hospitalization)
  Sender: FDA-Public Use
  Company Number: 2007BI026895

PATIENT
  Age: 61 Year
  Sex: Male
  Weight: 73.4827 kg

DRUGS (1)
  1. NATALIZUMAB [Suspect]
     Indication: MULTIPLE SCLEROSIS
     Dosage: 300 MG;QM;IV
     Route: 042
     Dates: start: 20070828

REACTIONS (3)
  - HEADACHE [None]
  - HYPOTENSION [None]
  - SYNCOPE [None]
